FAERS Safety Report 7874682-6 (Version None)
Quarter: 2011Q3

REPORT INFORMATION
  Report Type: 
  Country: None (occurrence: None)
  Receive Date: 20110929
  Receipt Date: 20110307
  Transmission Date: 20111222
  Serious: Yes (Hospitalization)
  Sender: FDA-Public Use
  Company Number: 1000019151

PATIENT
  Age: 55 Year
  Sex: Male

DRUGS (1)
  1. CAMPRAL [Suspect]
     Indication: ALCOHOLISM

REACTIONS (1)
  - CONVULSION [None]
